FAERS Safety Report 13554216 (Version 1)
Quarter: 2017Q2

REPORT INFORMATION
  Report Type: Spontaneous
  Country: DE (occurrence: DE)
  Receive Date: 20170517
  Receipt Date: 20170517
  Transmission Date: 20170830
  Serious: Yes (Other)
  Sender: FDA-Public Use
  Company Number: DE-EISAI MEDICAL RESEARCH-EC-2017-027477

PATIENT
  Age: 63 Year
  Sex: Female

DRUGS (1)
  1. LENVIMA [Suspect]
     Active Substance: LENVATINIB
     Indication: THYROID CANCER
     Dosage: UNKNOWN
     Route: 048
     Dates: start: 20170405, end: 20170421

REACTIONS (2)
  - Subarachnoid haemorrhage [Unknown]
  - Seizure [Unknown]

NARRATIVE: CASE EVENT DATE: 201704
